FAERS Safety Report 8116506 (Version 4)
Quarter: 2014Q4

REPORT INFORMATION
  Report Type: Report from Study
  Country: US (occurrence: US)
  Receive Date: 20110823
  Receipt Date: 20141016
  Transmission Date: 20150529
  Serious: Yes (Other)
  Sender: FDA-Public Use
  Company Number: US-MERCK-2011SP038450

PATIENT
  Age: 1 Day
  Sex: Male
  Weight: 2.95 kg

DRUGS (2)
  1. PEGINTERFERON (UNSPECIFIED) [Suspect]
     Active Substance: PEGINTERFERON ALFA-2A OR PEGINTERFERON ALFA-2B
     Indication: EXPOSURE DURING PREGNANCY
     Dosage: UNK UNK, UNKNOWN
     Route: 064
  2. RIBAVIRIN. [Suspect]
     Active Substance: RIBAVIRIN
     Indication: EXPOSURE DURING PREGNANCY
     Dosage: UNK UNK, UNKNOWN
     Route: 064

REACTIONS (4)
  - Cyanosis neonatal [Unknown]
  - Foetal exposure during pregnancy [Unknown]
  - Respiratory disorder neonatal [Unknown]
  - Streptococcus test positive [Unknown]
